FAERS Safety Report 8262671-1 (Version None)
Quarter: 2012Q2

REPORT INFORMATION
  Report Type: 
  Country: None (occurrence: None)
  Receive Date: 20120405
  Receipt Date: 20120328
  Transmission Date: 20120825
  Serious: Yes (Other)
  Sender: FDA-Public Use
  Company Number: ZA-JNJFOC-20120306731

PATIENT
  Sex: Female

DRUGS (2)
  1. REVELLEX [Suspect]
     Indication: CROHN'S DISEASE
     Dosage: 3 INFUSIONS
     Route: 042
     Dates: start: 20111221
  2. METHOTREXATE [Concomitant]
     Route: 065

REACTIONS (1)
  - MONONEUROPATHY MULTIPLEX [None]
